FAERS Safety Report 13743740 (Version 2)
Quarter: 2017Q3

REPORT INFORMATION
  Report Type: Spontaneous
  Country: US (occurrence: US)
  Receive Date: 20170711
  Receipt Date: 20170801
  Transmission Date: 20171127
  Serious: Yes (Hospitalization, Other)
  Sender: FDA-Public Use
  Company Number: US-NEUROCRINE BIOSCIENCES INC.-2017NBI00395

PATIENT
  Age: 48 Year
  Sex: Female
  Weight: 90.8 kg

DRUGS (12)
  1. INGREZZA [Suspect]
     Active Substance: VALBENAZINE
     Indication: TARDIVE DYSKINESIA
     Route: 048
     Dates: start: 20170503, end: 20170509
  2. TRILEPTAL [Concomitant]
     Active Substance: OXCARBAZEPINE
  3. INGREZZA [Suspect]
     Active Substance: VALBENAZINE
     Dosage: AT NIGHT
     Route: 048
     Dates: start: 20170510
  4. VIBERZI [Concomitant]
     Active Substance: ELUXADOLINE
  5. ARMOUR THYROID [Concomitant]
     Active Substance: THYROID, PORCINE
     Dosage: IN THE MORNING
  6. PROPRANOLOL [Concomitant]
     Active Substance: PROPRANOLOL HYDROCHLORIDE
  7. LITHIUM. [Concomitant]
     Active Substance: LITHIUM
     Dosage: EVERY NIGHT
  8. NEURONTIN [Concomitant]
     Active Substance: GABAPENTIN
  9. FANAPT [Concomitant]
     Active Substance: ILOPERIDONE
  10. LITHIUM. [Concomitant]
     Active Substance: LITHIUM
     Dosage: EVERY MORNING
  11. INDERAL [Concomitant]
     Active Substance: PROPRANOLOL HYDROCHLORIDE
  12. BENZTROPIN [Concomitant]

REACTIONS (7)
  - Suicidal ideation [Not Recovered/Not Resolved]
  - Hypersensitivity [Not Recovered/Not Resolved]
  - Bipolar disorder [Recovering/Resolving]
  - Sinus headache [Not Recovered/Not Resolved]
  - Feeling abnormal [Not Recovered/Not Resolved]
  - Aphasia [Not Recovered/Not Resolved]
  - Cough [Not Recovered/Not Resolved]

NARRATIVE: CASE EVENT DATE: 2017
